FAERS Safety Report 9664104 (Version 1)
Quarter: 2013Q4

REPORT INFORMATION
  Report Type: Spontaneous
  Country: JP (occurrence: JP)
  Receive Date: 20131101
  Receipt Date: 20131101
  Transmission Date: 20140711
  Serious: Yes (Life-Threatening, Other)
  Sender: FDA-Public Use
  Company Number: JP-ABBVIE-13P-087-1164667-00

PATIENT
  Age: 39 Year
  Sex: Male
  Weight: 71 kg

DRUGS (5)
  1. SEVOFRANE [Suspect]
     Indication: GENERAL ANAESTHESIA
     Dosage: 1 DAY
     Route: 055
     Dates: start: 20130912, end: 20130912
  2. FENTANYL [Concomitant]
     Indication: GENERAL ANAESTHESIA
     Dosage: 1 DAY
     Route: 042
     Dates: start: 20130912, end: 20130912
  3. ESLAX [Concomitant]
     Indication: GENERAL ANAESTHESIA
     Dosage: 1 DAY
     Route: 042
     Dates: start: 20130912, end: 20130912
  4. SUGAMMADEX SODIUM [Concomitant]
     Indication: GENERAL ANAESTHESIA
     Route: 042
     Dates: start: 20130912, end: 20130912
  5. NITROUS OXIDE [Concomitant]
     Indication: GENERAL ANAESTHESIA
     Dosage: 660 L, 1 DAY
     Route: 055
     Dates: start: 20130912, end: 20130912

REACTIONS (1)
  - Rhabdomyolysis [Recovered/Resolved]
